APPROVED DRUG PRODUCT: DOXYCYCLINE HYCLATE
Active Ingredient: DOXYCYCLINE HYCLATE
Strength: EQ 50MG BASE
Dosage Form/Route: TABLET;ORAL
Application: A062538 | Product #002 | TE Code: AB
Applicant: STRIDES PHARMA INTERNATIONAL AG
Approved: Nov 24, 2025 | RLD: No | RS: No | Type: RX